FAERS Safety Report 22294235 (Version 1)
Quarter: 2023Q2

REPORT INFORMATION
  Report Type: Spontaneous
  Country: GB (occurrence: GB)
  Receive Date: 20230508
  Receipt Date: 20230508
  Transmission Date: 20230722
  Serious: Yes (Other)
  Sender: FDA-Public Use
  Company Number: None

PATIENT
  Age: 8 Year
  Weight: 35.4 kg

DRUGS (2)
  1. CONCERTA [Suspect]
     Active Substance: METHYLPHENIDATE HYDROCHLORIDE
     Indication: Attention deficit hyperactivity disorder
     Route: 048
     Dates: start: 20230216, end: 20230314
  2. CONCERTA [Suspect]
     Active Substance: METHYLPHENIDATE HYDROCHLORIDE
     Route: 048
     Dates: start: 20230216, end: 20230314

REACTIONS (7)
  - Depression [Unknown]
  - Emotional disorder [Unknown]
  - Eye movement disorder [Unknown]
  - Brain fog [Unknown]
  - Hyperventilation [Unknown]
  - Speech disorder [Unknown]
  - Soliloquy [Unknown]
